FAERS Safety Report 16063687 (Version 1)
Quarter: 2019Q1

REPORT INFORMATION
  Report Type: Spontaneous
  Country: CA (occurrence: CA)
  Receive Date: 20190312
  Receipt Date: 20190312
  Transmission Date: 20190418
  Serious: Yes (Death)
  Sender: FDA-Public Use
  Company Number: CA-AMNEAL PHARMACEUTICALS COMPANY GMBH-2019AGH00012

PATIENT

DRUGS (2)
  1. DOXYCYCLINE HYCLATE. [Suspect]
     Active Substance: DOXYCYCLINE HYCLATE
     Indication: CARDIAC AMYLOIDOSIS
     Dosage: 100 MG, 2X/DAY
     Route: 065
  2. URSODEOXYCHOLIC ACID [Suspect]
     Active Substance: URSODIOL
     Indication: CARDIAC AMYLOIDOSIS
     Dosage: 250 MG, 3X/DAY
     Route: 065

REACTIONS (2)
  - Off label use [Unknown]
  - Dementia [Fatal]
